FAERS Safety Report 20743447 (Version 3)
Quarter: 2024Q3

REPORT INFORMATION
  Report Type: Spontaneous
  Country: US (occurrence: US)
  Receive Date: 20220425
  Receipt Date: 20240829
  Transmission Date: 20241017
  Serious: Yes (Other)
  Sender: JOHNSON AND JOHNSON
  Company Number: US-JNJFOC-20220445767

PATIENT
  Age: 68 Year
  Sex: Female

DRUGS (9)
  1. ELMIRON [Suspect]
     Active Substance: PENTOSAN POLYSULFATE SODIUM
     Indication: Cystitis interstitial
     Route: 048
     Dates: start: 1996
  2. ELMIRON [Suspect]
     Active Substance: PENTOSAN POLYSULFATE SODIUM
     Route: 048
     Dates: start: 199710, end: 199912
  3. ELMIRON [Suspect]
     Active Substance: PENTOSAN POLYSULFATE SODIUM
     Route: 048
     Dates: start: 20000110, end: 20131203
  4. ELMIRON [Suspect]
     Active Substance: PENTOSAN POLYSULFATE SODIUM
     Route: 048
  5. ELMIRON [Suspect]
     Active Substance: PENTOSAN POLYSULFATE SODIUM
     Route: 048
     Dates: start: 20191219, end: 202001
  6. AMITRIPTYLINE [Concomitant]
     Active Substance: AMITRIPTYLINE
     Indication: Cystitis interstitial
     Dates: start: 20000113, end: 20170124
  7. TRAZODONE [Concomitant]
     Active Substance: TRAZODONE HYDROCHLORIDE
     Indication: Depression
     Dates: start: 20001102, end: 20171220
  8. BUPROPION [Concomitant]
     Active Substance: BUPROPION
     Indication: Depression
     Dates: start: 20060908, end: 20181219
  9. SERTRALINE [Concomitant]
     Active Substance: SERTRALINE HYDROCHLORIDE
     Indication: Anxiety
     Dates: start: 20130930, end: 20201222

REACTIONS (2)
  - Dry age-related macular degeneration [Not Recovered/Not Resolved]
  - Maculopathy [Unknown]

NARRATIVE: CASE EVENT DATE: 20160301
